FAERS Safety Report 16557372 (Version 1)
Quarter: 2019Q3

REPORT INFORMATION
  Report Type: Spontaneous
  Country: US (occurrence: US)
  Receive Date: 20190529
  Receipt Date: 20190529
  Transmission Date: 20191004
  Serious: Yes (Other)
  Sender: FDA-Public Use
  Company Number: None

PATIENT
  Age: 62 Year
  Sex: Female
  Weight: 68.04 kg

DRUGS (1)
  1. LEVOTHYROXINE 137MCG [Suspect]
     Active Substance: LEVOTHYROXINE
     Indication: AUTOIMMUNE THYROIDITIS
     Dates: start: 201801, end: 201902

REACTIONS (4)
  - Therapeutic product effect incomplete [None]
  - Blood glucose abnormal [None]
  - Blood parathyroid hormone abnormal [None]
  - Product substitution issue [None]

NARRATIVE: CASE EVENT DATE: 20190109
